FAERS Safety Report 12199446 (Version 2)
Quarter: 2016Q2

REPORT INFORMATION
  Report Type: Spontaneous
  Country: JP (occurrence: JP)
  Receive Date: 20160322
  Receipt Date: 20160406
  Transmission Date: 20160815
  Serious: Yes (Other)
  Sender: FDA-Public Use
  Company Number: JP-SUN PHARMACEUTICAL INDUSTRIES LTD-2016RR-110584

PATIENT

DRUGS (3)
  1. DONEPEZIL. [Concomitant]
     Active Substance: DONEPEZIL
     Indication: DEMENTIA WITH LEWY BODIES
     Dosage: 5 MG, DAILY
     Route: 065
  2. DEPAKENE [Suspect]
     Active Substance: VALPROIC ACID
     Indication: DEMENTIA WITH LEWY BODIES
     Dosage: 400 MG, DAILY
     Route: 065
  3. QUETIAPINE. [Concomitant]
     Active Substance: QUETIAPINE
     Indication: DEMENTIA WITH LEWY BODIES
     Dosage: 62.5 MG, DAILY
     Route: 065

REACTIONS (2)
  - Hypoglycaemia [Recovering/Resolving]
  - Hyperammonaemia [Recovering/Resolving]
